FAERS Safety Report 18630327 (Version 1)
Quarter: 2020Q4

REPORT INFORMATION
  Report Type: Spontaneous
  Country: DE (occurrence: DE)
  Receive Date: 20201217
  Receipt Date: 20201217
  Transmission Date: 20210114
  Serious: Yes (Hospitalization)
  Sender: FDA-Public Use
  Company Number: DE-ASTRAZENECA-2020SF67419

PATIENT
  Sex: Female

DRUGS (13)
  1. ATORVASTATIN [Concomitant]
     Active Substance: ATORVASTATIN
     Dosage: 20 MG, 0-0-1-0, TABLET
  2. BERODUAL [Concomitant]
     Active Substance: FENOTEROL HYDROBROMIDE\IPRATROPIUM BROMIDE
     Dosage: 50|20 ??G
     Route: 055
  3. FORMOTEROL [Concomitant]
     Active Substance: FORMOTEROL
     Dosage: 12 ??G, 1-0-1-0, INHALATION CAPSULES
     Route: 055
  4. PREDNISOLONE. [Suspect]
     Active Substance: PREDNISOLONE
     Dosage: 20 MG, 1.5-0-0-0, TABLET
     Route: 065
  5. DAXAS [Concomitant]
     Active Substance: ROFLUMILAST
     Dosage: 500 ??G, 0-0-1-0, TABLET
  6. METAMIZOL [Concomitant]
     Active Substance: METAMIZOLE SODIUM
     Dosage: 500 MG, NEEDS, DROPS
  7. BUDESONIDE. [Suspect]
     Active Substance: BUDESONIDE
     Dosage: 200 ??G, 1-0-1-0, INHALATION CAPSULES
     Route: 055
  8. PREGABALIN. [Concomitant]
     Active Substance: PREGABALIN
     Dosage: 75 MG, 1-0-1-0, CAPSULES
  9. BRETARIS [Concomitant]
     Active Substance: ACLIDINIUM BROMIDE
     Dosage: 322 UG, 1-0-1-0, INHALATION CAPSULES
     Route: 055
  10. KALIUM [Concomitant]
     Active Substance: POTASSIUM CHLORIDE
     Dosage: 1-0-0-0, EFFERVESCENT TABLETS
  11. ASS 100 [Concomitant]
     Active Substance: ASPIRIN
     Dosage: 100 MG, 0-1-0-0, TABLET
  12. PANTOPRAZOL [Concomitant]
     Active Substance: PANTOPRAZOLE SODIUM
     Dosage: 20 MG, 1-0-1-0, TABLET
  13. OXYCODONE [Concomitant]
     Active Substance: OXYCODONE
     Dosage: 10 MG, 1-0-1-0, CAPSULE

REACTIONS (1)
  - Dyspnoea [Unknown]

NARRATIVE: CASE EVENT DATE: 20201103
